FAERS Safety Report 5895732-2 (Version None)
Quarter: 2008Q3

REPORT INFORMATION
  Report Type: 
  Country: None (occurrence: None)
  Receive Date: 20080924
  Receipt Date: 20080625
  Transmission Date: 20090109
  Serious: No
  Sender: FDA-Public Use
  Company Number: US-BAYER-200826360NA

PATIENT
  Sex: Female

DRUGS (1)
  1. CLIMARA [Suspect]
     Indication: HOT FLUSH
     Route: 062

REACTIONS (5)
  - ANXIETY [None]
  - DRUG INEFFECTIVE [None]
  - HOT FLUSH [None]
  - INSOMNIA [None]
  - MOOD ALTERED [None]
